FAERS Safety Report 4877498-8 (Version None)
Quarter: 2006Q1

REPORT INFORMATION
  Report Type: 
  Country: None (occurrence: None)
  Receive Date: 20060109
  Receipt Date: 20051226
  Transmission Date: 20060701
  Serious: Yes (Other)
  Sender: FDA-Public Use
  Company Number: 2005170874

PATIENT
  Age: 36 Year
  Sex: Female

DRUGS (1)
  1. DEPO-PROVERA [Suspect]
     Indication: CONTRACEPTION
     Dosage: 150 MG (150 MG, SINGLE INJECTION), UNKNOWN
     Dates: start: 20041101, end: 20041101

REACTIONS (7)
  - AMENORRHOEA [None]
  - BLOOD PRESSURE INCREASED [None]
  - FLUID RETENTION [None]
  - INFERTILITY FEMALE [None]
  - OEDEMA [None]
  - RENAL DISORDER [None]
  - WEIGHT LOSS POOR [None]
